FAERS Safety Report 19752697 (Version 4)
Quarter: 2022Q1

REPORT INFORMATION
  Report Type: Spontaneous
  Country: CO (occurrence: CO)
  Receive Date: 20210827
  Receipt Date: 20220124
  Transmission Date: 20220423
  Serious: Yes (Other)
  Sender: FDA-Public Use
  Company Number: CO-AMGEN-COLSP2021128127

PATIENT
  Age: 59 Year
  Sex: Female
  Weight: 60 kg

DRUGS (14)
  1. MVASI [Suspect]
     Active Substance: BEVACIZUMAB-AWWB
     Indication: Ovarian cancer
     Dosage: 930 MILLIGRAM, QD
     Route: 042
     Dates: start: 20181121
  2. MVASI [Suspect]
     Active Substance: BEVACIZUMAB-AWWB
     Indication: Ovarian cancer stage III
     Dosage: 820.8 MILLIGRAM, Q3WK
     Route: 042
  3. MVASI [Suspect]
     Active Substance: BEVACIZUMAB-AWWB
     Dosage: 915 MILLIGRAM, QD
     Route: 042
     Dates: start: 20211218
  4. NEULASTA [Suspect]
     Active Substance: PEGFILGRASTIM
     Indication: Ovarian cancer stage IV
     Dosage: 6 MILLIGRAM, Q3WK
     Route: 058
     Dates: start: 20211218
  5. DEXAMETHASONE PHOSPHATE [Concomitant]
     Active Substance: DEXAMETHASONE PHOSPHATE
     Indication: Ovarian cancer
     Dosage: 8 MILLIGRAM
     Route: 042
     Dates: start: 20181121
  6. DEXAMETHASONE PHOSPHATE [Concomitant]
     Active Substance: DEXAMETHASONE PHOSPHATE
     Indication: Ovarian cancer stage IV
     Dosage: 8 MILLIGRAM
     Route: 042
     Dates: start: 20210519
  7. DEXAMETHASONE PHOSPHATE [Concomitant]
     Active Substance: DEXAMETHASONE PHOSPHATE
     Dosage: 8 MILLIGRAM, QD
     Route: 042
     Dates: start: 20211218
  8. ONDANSETRON [Concomitant]
     Active Substance: ONDANSETRON
     Indication: Ovarian cancer stage III
     Dosage: 16 MILLIGRAM
     Route: 042
     Dates: start: 20181121
  9. ONDANSETRON [Concomitant]
     Active Substance: ONDANSETRON
     Indication: Ovarian cancer stage IV
     Dosage: 16 MILLIGRAM
     Route: 042
     Dates: start: 20210519
  10. ONDANSETRON [Concomitant]
     Active Substance: ONDANSETRON
     Dosage: 16 MILLIGRAM, QD
     Route: 042
     Dates: start: 20211218
  11. GEMCITABINE [Concomitant]
     Active Substance: GEMCITABINE
     Indication: Ovarian cancer stage III
     Dosage: 1600 MILLIGRAM, QD
     Dates: start: 20181121
  12. TRAMADOL [Concomitant]
     Active Substance: TRAMADOL
     Indication: Pain
     Dosage: 50 MILLIGRAM, QD
     Dates: start: 20211101
  13. FOSAPREPITANT [Concomitant]
     Active Substance: FOSAPREPITANT
     Indication: Ovarian cancer stage IV
     Dosage: 150 MILLIGRAM, QD
     Route: 042
     Dates: start: 20211218
  14. TOPOTECAN [Concomitant]
     Active Substance: TOPOTECAN HYDROCHLORIDE
     Indication: Ovarian cancer stage IV
     Dosage: 2.09 MILLIGRAM, QD
     Route: 042
     Dates: start: 20211218

REACTIONS (7)
  - Cytopenia [Unknown]
  - Ovarian cancer [Not Recovered/Not Resolved]
  - Thrombocytopenia [Unknown]
  - Macule [Recovering/Resolving]
  - COVID-19 [Recovering/Resolving]
  - Proteinuria [Recovered/Resolved]
  - Constipation [Recovered/Resolved]

NARRATIVE: CASE EVENT DATE: 20210524
